FAERS Safety Report 4431297-X (Version None)
Quarter: 2004Q3

REPORT INFORMATION
  Report Type: 
  Country: None (occurrence: None)
  Receive Date: 20040820
  Receipt Date: 20040820
  Transmission Date: 20050211
  Serious: Yes (Death, Hospitalization)
  Sender: FDA-Public Use
  Company Number: None

PATIENT
  Sex: Male
  Weight: 80.7 kg

DRUGS (12)
  1. TAXOL [Suspect]
     Dosage: 200MG/M2/DAY
     Dates: start: 20040621
  2. TAXOL [Suspect]
     Dosage: 200MG/M2/DAY
     Dates: start: 20040719
  3. CISPLATIN [Suspect]
     Dosage: 15MG/M2/DAY
     Dates: start: 20040621, end: 20040624
  4. CISPLATIN [Suspect]
     Dosage: 15MG/M2/DAY
     Dates: start: 20040719, end: 20040723
  5. FLUOROURACIL [Concomitant]
  6. NEULASTA [Concomitant]
  7. MIODARONE [Concomitant]
  8. SIMVASTATIN [Concomitant]
  9. TESSALON [Concomitant]
  10. ZOSYN [Concomitant]
  11. DILAUDID [Concomitant]
  12. ASPIRIN [Concomitant]

REACTIONS (6)
  - BACK PAIN [None]
  - CHEST X-RAY ABNORMAL [None]
  - CHILLS [None]
  - COUGH [None]
  - OXYGEN SATURATION DECREASED [None]
  - PYREXIA [None]
